FAERS Safety Report 14346091 (Version 2)
Quarter: 2018Q2

REPORT INFORMATION
  Report Type: Spontaneous
  Country: FR (occurrence: FR)
  Receive Date: 20180103
  Receipt Date: 20180405
  Transmission Date: 20180711
  Serious: Yes (Other)
  Sender: FDA-Public Use
  Company Number: FR-009507513-1712FRA013587

PATIENT
  Age: 66 Year
  Sex: Female
  Weight: 48 kg

DRUGS (2)
  1. ZEPATIER [Suspect]
     Active Substance: ELBASVIR\GRAZOPREVIR
     Indication: HEPATITIS C
     Dosage: UNK
     Route: 048
     Dates: start: 20171115, end: 20171128
  2. ZOPICLONE [Suspect]
     Active Substance: ZOPICLONE
     Dosage: 1 DF, QD
     Route: 048
     Dates: start: 2010

REACTIONS (2)
  - Hallucination [Recovered/Resolved]
  - Neuropsychiatric symptoms [Recovered/Resolved]

NARRATIVE: CASE EVENT DATE: 20171128
